FAERS Safety Report 7320763-5 (Version None)
Quarter: 2011Q1

REPORT INFORMATION
  Report Type: 
  Country: None (occurrence: None)
  Receive Date: 20110228
  Receipt Date: 20110216
  Transmission Date: 20110831
  Serious: Yes (Other)
  Sender: FDA-Public Use
  Company Number: FI-ELI_LILLY_AND_COMPANY-FI201101003521

PATIENT
  Sex: Female

DRUGS (4)
  1. ATACAND [Concomitant]
     Indication: HYPERTENSION
     Dosage: 2 MG, DAILY (1/D)
  2. PANADOL [Concomitant]
     Indication: PAIN
     Dosage: UNK, UNKNOWN
     Route: 065
  3. CALCIUM + VITAMIN D [Concomitant]
     Indication: MINERAL SUPPLEMENTATION
     Dosage: UNK, UNKNOWN
     Route: 065
  4. FORTEO [Suspect]
     Indication: OSTEOPOROSIS
     Dosage: 20 UG, DAILY (1/D)
     Route: 058
     Dates: start: 20100916

REACTIONS (2)
  - HYPERHIDROSIS [None]
  - TACHYCARDIA PAROXYSMAL [None]
